FAERS Safety Report 6141412-8 (Version None)
Quarter: 2009Q2

REPORT INFORMATION
  Report Type: 
  Country: None (occurrence: None)
  Receive Date: 20090402
  Receipt Date: 20090330
  Transmission Date: 20091009
  Serious: Yes (Other)
  Sender: FDA-Public Use
  Company Number: IT-BAYER-200917531GPV

PATIENT
  Age: 69 Year
  Sex: Male

DRUGS (1)
  1. NEXAVAR [Suspect]
     Indication: HEPATIC NEOPLASM
     Dosage: TOTAL DAILY DOSE: 800 MG
     Route: 048
     Dates: start: 20090228, end: 20090309

REACTIONS (4)
  - ANOREXIA [None]
  - ASTHENIA [None]
  - DRY MOUTH [None]
  - DYSKINESIA [None]
